FAERS Safety Report 24887802 (Version 2)
Quarter: 2025Q1

REPORT INFORMATION
  Report Type: Report from Study
  Country: CA (occurrence: CA)
  Receive Date: 20250127
  Receipt Date: 20250205
  Transmission Date: 20250409
  Serious: Yes (Other)
  Sender: TAKEDA
  Company Number: CA-TAKEDA-2019TUS010244

PATIENT
  Age: 83 Year
  Sex: Male

DRUGS (25)
  1. VEDOLIZUMAB [Suspect]
     Active Substance: VEDOLIZUMAB
     Indication: Colitis ulcerative
  2. VEDOLIZUMAB [Suspect]
     Active Substance: VEDOLIZUMAB
  3. VEDOLIZUMAB [Suspect]
     Active Substance: VEDOLIZUMAB
  4. VEDOLIZUMAB [Suspect]
     Active Substance: VEDOLIZUMAB
  5. VEDOLIZUMAB [Suspect]
     Active Substance: VEDOLIZUMAB
  6. VEDOLIZUMAB [Suspect]
     Active Substance: VEDOLIZUMAB
  7. VEDOLIZUMAB [Suspect]
     Active Substance: VEDOLIZUMAB
  8. VEDOLIZUMAB [Suspect]
     Active Substance: VEDOLIZUMAB
  9. VEDOLIZUMAB [Suspect]
     Active Substance: VEDOLIZUMAB
  10. VEDOLIZUMAB [Suspect]
     Active Substance: VEDOLIZUMAB
     Dosage: 300 MILLIGRAM, Q4WEEKS
     Dates: start: 20250201
  11. PANTOPRAZOLE SODIUM [Suspect]
     Active Substance: PANTOPRAZOLE SODIUM
     Indication: Product used for unknown indication
  12. ASPIRIN [Concomitant]
     Active Substance: ASPIRIN
  13. ATORVASTATIN [Concomitant]
     Active Substance: ATORVASTATIN
  14. CARVEDILOL [Concomitant]
     Active Substance: CARVEDILOL
     Dosage: 125 MILLIGRAM, BID
  15. RAMIPRIL [Concomitant]
     Active Substance: RAMIPRIL
     Dosage: 2.5 MILLIGRAM, BID
  16. SPIRONOLACTONE [Concomitant]
     Active Substance: SPIRONOLACTONE
  17. Novo ferrogluc [Concomitant]
  18. BUDESONIDE [Concomitant]
     Active Substance: BUDESONIDE
     Dosage: 3 MILLIGRAM, BID
  19. Cortiment [Concomitant]
  20. IRBESARTAN [Concomitant]
     Active Substance: IRBESARTAN
  21. VITAMIN D [Concomitant]
     Active Substance: VITAMIN D NOS
  22. TAMSULOSIN [Concomitant]
     Active Substance: TAMSULOSIN
  23. DUTASTERIDE [Concomitant]
     Active Substance: DUTASTERIDE
  24. DAPAGLIFLOZIN [Concomitant]
     Active Substance: DAPAGLIFLOZIN
  25. BISOPROLOL [Concomitant]
     Active Substance: BISOPROLOL

REACTIONS (2)
  - Colitis ulcerative [Unknown]
  - Off label use [Unknown]

NARRATIVE: CASE EVENT DATE: 20250201
